FAERS Safety Report 9359081 (Version 2)
Quarter: 2013Q3

REPORT INFORMATION
  Report Type: Spontaneous
  Country: US (occurrence: US)
  Receive Date: 20130620
  Receipt Date: 20130708
  Transmission Date: 20140515
  Serious: Yes (Other)
  Sender: FDA-Public Use
  Company Number: US-ASTRAZENECA-2013SE47311

PATIENT
  Sex: Male

DRUGS (3)
  1. BRILINTA [Suspect]
     Indication: ACUTE CORONARY SYNDROME
     Route: 048
     Dates: start: 20130522, end: 20130524
  2. ASPIRIN [Suspect]
     Dosage: LOADING DOSE OF 325 MG
     Route: 065
     Dates: start: 20130522
  3. DRUG ELUDING STENT BOSTON SCIENTIFID PROMUS [Suspect]
     Route: 065
     Dates: start: 20130522

REACTIONS (2)
  - Coronary artery thrombosis [Unknown]
  - Adverse event [Unknown]
